FAERS Safety Report 11870117 (Version 1)
Quarter: 2015Q4

REPORT INFORMATION
  Report Type: Spontaneous
  Country: SE (occurrence: SE)
  Receive Date: 20151228
  Receipt Date: 20151228
  Transmission Date: 20160305
  Serious: Yes (Life-Threatening, Hospitalization, Disabling)
  Sender: FDA-Public Use
  Company Number: SE-ROCHE-1684706

PATIENT
  Age: 9 Year
  Sex: Female

DRUGS (4)
  1. AERIUS [Concomitant]
     Active Substance: DESLORATADINE
  2. XOLAIR [Suspect]
     Active Substance: OMALIZUMAB
     Indication: VACCINATION COMPLICATION
     Route: 058
     Dates: start: 20110125, end: 20141209
  3. CROMOGLICATE SODIUM [Concomitant]
     Active Substance: CROMOLYN SODIUM
  4. SINGULAIR [Concomitant]
     Active Substance: MONTELUKAST SODIUM

REACTIONS (1)
  - Type 1 diabetes mellitus [Not Recovered/Not Resolved]
